FAERS Safety Report 14281697 (Version 4)
Quarter: 2024Q2

REPORT INFORMATION
  Report Type: Spontaneous
  Country: DE (occurrence: DE)
  Receive Date: 20171213
  Receipt Date: 20240528
  Transmission Date: 20240716
  Serious: Yes (Hospitalization, Other)
  Sender: FDA-Public Use
  Company Number: DE-NOVPHSZ-PHHY2017DE171414

PATIENT
  Age: 56 Year
  Sex: Male

DRUGS (12)
  1. RITONAVIR [Interacting]
     Active Substance: RITONAVIR
     Indication: Hepatitis C
     Dosage: UNK
     Route: 065
  2. RITONAVIR [Interacting]
     Active Substance: RITONAVIR
     Indication: Hepatitis
  3. TACROLIMUS [Interacting]
     Active Substance: TACROLIMUS
     Indication: Renal transplant
     Dosage: UNK
     Route: 065
  4. TACROLIMUS [Interacting]
     Active Substance: TACROLIMUS
     Indication: Immunosuppressant drug therapy
  5. TACROLIMUS [Interacting]
     Active Substance: TACROLIMUS
     Indication: Prophylaxis against transplant rejection
  6. PARITAPREVIR [Interacting]
     Active Substance: PARITAPREVIR
     Indication: Hepatitis C
     Dosage: UNK
     Route: 065
  7. DASABUVIR [Interacting]
     Active Substance: DASABUVIR
     Indication: Hepatitis C
     Dosage: UNK
     Route: 065
  8. OMBITASVIR [Interacting]
     Active Substance: OMBITASVIR
     Indication: Hepatitis C
     Dosage: UNK
     Route: 065
  9. PREDNISOLONE [Suspect]
     Active Substance: PREDNISOLONE
     Indication: Immunosuppressant drug therapy
     Dosage: LOW DOSE
     Route: 065
  10. PREDNISOLONE [Suspect]
     Active Substance: PREDNISOLONE
     Indication: Prophylaxis against transplant rejection
  11. MYCOPHENOLIC ACID [Suspect]
     Active Substance: MYCOPHENOLIC ACID
     Indication: Prophylaxis against transplant rejection
     Dosage: UNK
     Route: 065
  12. MYCOPHENOLIC ACID [Concomitant]
     Active Substance: MYCOPHENOLIC ACID
     Indication: Immunosuppression
     Dosage: UNK
     Route: 065

REACTIONS (10)
  - Toxicity to various agents [Recovered/Resolved]
  - Acute kidney injury [Recovered/Resolved]
  - Pneumonia [Unknown]
  - Gastric ulcer [Unknown]
  - Erosive duodenitis [Unknown]
  - Drug level increased [Recovered/Resolved]
  - Gastrooesophageal reflux disease [Unknown]
  - Drug interaction [Recovered/Resolved]
  - Immunosuppressant drug level increased [Recovered/Resolved]
  - Labelled drug-drug interaction medication error [Unknown]
